FAERS Safety Report 25606549 (Version 1)
Quarter: 2025Q3

REPORT INFORMATION
  Report Type: Spontaneous
  Country: US (occurrence: US)
  Receive Date: 20250725
  Receipt Date: 20250725
  Transmission Date: 20251020
  Serious: Yes (Life-Threatening, Hospitalization, Other)
  Sender: AMGEN
  Company Number: US-AMGEN-USASP2025139183

PATIENT
  Age: 66 Year
  Sex: Female

DRUGS (2)
  1. INFLIXIMAB [Suspect]
     Active Substance: INFLIXIMAB
     Indication: Crohn^s disease
     Route: 065
  2. PREDNISONE [Suspect]
     Active Substance: PREDNISONE
     Indication: Crohn^s disease
     Dosage: 10 MILLIGRAM, QD
     Route: 065

REACTIONS (7)
  - Pneumocystis jirovecii pneumonia [Recovered/Resolved]
  - Respiratory failure [Not Recovered/Not Resolved]
  - Lung infiltration [Not Recovered/Not Resolved]
  - Clostridium difficile colitis [Unknown]
  - Hypovolaemic shock [Unknown]
  - Blood beta-D-glucan abnormal [Unknown]
  - Blood lactate dehydrogenase increased [Unknown]
